FAERS Safety Report 20663245 (Version 1)
Quarter: 2022Q1

REPORT INFORMATION
  Report Type: Spontaneous
  Country: US (occurrence: None)
  Receive Date: 20220331
  Receipt Date: 20220331
  Transmission Date: 20220424
  Serious: Yes (Other)
  Sender: FDA-Public Use
  Company Number: None

PATIENT
  Age: 26 Year
  Sex: Female
  Weight: 54 kg

DRUGS (5)
  1. TOBRAMYCIN AND DEXAMETHASONE [Suspect]
     Active Substance: DEXAMETHASONE\TOBRAMYCIN
     Indication: Eye irritation
     Dosage: FREQUENCY : TWICE A DAY;?
     Route: 061
  2. DULOXETINE [Concomitant]
     Active Substance: DULOXETINE
  3. VITAMINS [Concomitant]
     Active Substance: VITAMINS
  4. VITAMIN D3 [Concomitant]
     Active Substance: CHOLECALCIFEROL
  5. PROBIOTICS NOS [Concomitant]
     Active Substance: PROBIOTICS NOS

REACTIONS (6)
  - Eyelid irritation [None]
  - Erythema [None]
  - Eyelid bleeding [None]
  - Ocular hyperaemia [None]
  - Eye irritation [None]
  - Eyelid pain [None]

NARRATIVE: CASE EVENT DATE: 20211027
